FAERS Safety Report 5800660-4 (Version None)
Quarter: 2008Q3

REPORT INFORMATION
  Report Type: 
  Country: None (occurrence: None)
  Receive Date: 20080703
  Receipt Date: 20080625
  Transmission Date: 20090109
  Serious: Yes (Hospitalization, Other)
  Sender: FDA-Public Use
  Company Number: US-GENENTECH-261721

PATIENT
  Sex: Female
  Weight: 68.481 kg

DRUGS (4)
  1. AVASTIN [Suspect]
     Indication: NON-SMALL CELL LUNG CANCER
     Dosage: 15 MG/KG, QDX21
     Route: 042
     Dates: start: 20080425
  2. CARBOPLATIN [Concomitant]
     Indication: NON-SMALL CELL LUNG CANCER
     Dosage: 6 AUC, UNK
  3. PACLITAXEL [Concomitant]
     Indication: NON-SMALL CELL LUNG CANCER
     Dosage: 200 MG/M2, UNK
  4. ANTIHYPERTENSIVE AGENTS [Concomitant]
     Indication: DRUG USE FOR UNKNOWN INDICATION

REACTIONS (1)
  - HYPERTENSIVE ENCEPHALOPATHY [None]
